FAERS Safety Report 20108136 (Version 1)
Quarter: 2021Q4

REPORT INFORMATION
  Report Type: Other
  Country: PT (occurrence: PT)
  Receive Date: 20211124
  Receipt Date: 20211124
  Transmission Date: 20220304
  Serious: Yes (Disabling)
  Sender: FDA-Public Use
  Company Number: None

PATIENT

DRUGS (6)
  1. RUXOLITINIB [Suspect]
     Active Substance: RUXOLITINIB
     Indication: Myelofibrosis
     Dosage: 30 MG, QD (15 MG 12/12H)
     Route: 048
     Dates: start: 20200303
  2. ALPRAZOLAM [Concomitant]
     Active Substance: ALPRAZOLAM
     Indication: Product used for unknown indication
     Dosage: 0.5 MG, QD (1 COMP ??? NOITE)
     Route: 065
  3. HYDROXYUREA [Concomitant]
     Active Substance: HYDROXYUREA
     Indication: Product used for unknown indication
     Dosage: 1500 MG, QD (1XDI)
     Route: 048
  4. ACETAMINOPHEN [Concomitant]
     Active Substance: ACETAMINOPHEN
     Indication: Product used for unknown indication
     Dosage: 1000 MG
     Route: 048
  5. METAMIZOLE MAGNESIUM [Concomitant]
     Active Substance: METAMIZOLE MAGNESIUM
     Indication: Product used for unknown indication
     Dosage: 575 MG
     Route: 048
  6. GABAPENTIN [Concomitant]
     Active Substance: GABAPENTIN
     Indication: Product used for unknown indication
     Dosage: 100 MG (12/12H)
     Route: 065

REACTIONS (2)
  - Anosmia [Recovering/Resolving]
  - Ageusia [Not Recovered/Not Resolved]

NARRATIVE: CASE EVENT DATE: 20200423
